FAERS Safety Report 9060016 (Version 3)
Quarter: 2013Q1

REPORT INFORMATION
  Report Type: Spontaneous
  Country: ES (occurrence: ES)
  Receive Date: 20130212
  Receipt Date: 20130304
  Transmission Date: 20140127
  Serious: Yes (Life-Threatening, Hospitalization, Other)
  Sender: FDA-Public Use
  Company Number: ES-PFIZER INC-2012317264

PATIENT
  Age: 37 Year
  Sex: Female

DRUGS (2)
  1. SUTENT [Suspect]
     Indication: RENAL CANCER
     Dosage: 50 MG, 1X/DAY
     Route: 048
     Dates: start: 20121123, end: 20121204
  2. CLEXANE [Interacting]
     Indication: VENA CAVA THROMBOSIS
     Dosage: 60 MG, 2X/DAY (EVERY 12 HOURS)
     Route: 048
     Dates: start: 20121129, end: 20121204

REACTIONS (2)
  - Drug interaction [Recovered/Resolved]
  - Subarachnoid haemorrhage [Recovered/Resolved]
